FAERS Safety Report 6603478-8 (Version None)
Quarter: 2010Q1

REPORT INFORMATION
  Report Type: 
  Country: None (occurrence: None)
  Receive Date: 20100226
  Receipt Date: 20090710
  Transmission Date: 20100710
  Serious: No
  Sender: FDA-Public Use
  Company Number: A0796393A

PATIENT
  Age: 27 Year
  Sex: Female

DRUGS (2)
  1. VALTREX [Suspect]
     Dosage: 250MG PER DAY
     Route: 048
     Dates: start: 20090301, end: 20090601
  2. NO CONCURRENT MEDICATION [Concomitant]

REACTIONS (1)
  - ALOPECIA [None]
